FAERS Safety Report 6692593-9 (Version None)
Quarter: 2010Q2

REPORT INFORMATION
  Report Type: 
  Country: None (occurrence: None)
  Receive Date: 20100422
  Receipt Date: 20100414
  Transmission Date: 20101027
  Serious: Yes (Hospitalization)
  Sender: FDA-Public Use
  Company Number: JP-PFIZER INC-2009276935

PATIENT
  Age: 45 Year
  Sex: Female
  Weight: 49.8 kg

DRUGS (13)
  1. CAPECITABINE [Suspect]
     Indication: BREAST CANCER RECURRENT
     Dosage: 1600 MG, 2X/DAY
     Route: 048
     Dates: start: 20090402, end: 20090408
  2. CAPECITABINE [Suspect]
     Dosage: 1450 MG, 2X/DAY
     Dates: start: 20090409, end: 20090909
  3. SUNITINIB MALATE [Suspect]
     Indication: BREAST CANCER RECURRENT
     Dosage: 37.5 MG, 1X/DAY
     Route: 048
     Dates: start: 20090402, end: 20090624
  4. SUNITINIB MALATE [Suspect]
     Dosage: 25 MG, 1X/DAY
     Route: 048
     Dates: start: 20090625, end: 20090701
  5. SUNITINIB MALATE [Suspect]
     Dosage: 37.5 MG, 1X/DAY
     Route: 048
     Dates: start: 20090702, end: 20090708
  6. SUNITINIB MALATE [Suspect]
     Dosage: 25 MG, 1X/DAY
     Route: 048
     Dates: start: 20090709, end: 20090916
  7. PYRIDOXAL PHOSPHATE HYDRATE [Concomitant]
     Dates: start: 20090521, end: 20090916
  8. URSODEOXYCHOLIC ACID [Concomitant]
     Dosage: 100 MG, 3X/DAY
     Dates: start: 20090516
  9. GOSHAJINKIGAN [Concomitant]
     Dates: start: 20090625, end: 20090916
  10. HIRUDOID [Concomitant]
     Dosage: UNK
     Route: 062
     Dates: start: 20090604
  11. WHITE PETROLATUM [Concomitant]
     Dosage: UNK
     Route: 062
     Dates: start: 20090521
  12. MYSER [Concomitant]
     Dosage: UNK
     Route: 062
     Dates: start: 20090709
  13. BERIZYM [Concomitant]
     Indication: DYSPEPSIA
     Dosage: 1 G, 3X/DAY
     Route: 048
     Dates: start: 20090915

REACTIONS (9)
  - BILE DUCT STENOSIS [None]
  - DIARRHOEA [None]
  - DYSPEPSIA [None]
  - HYPERAMYLASAEMIA [None]
  - MALAISE [None]
  - NEUTROPENIA [None]
  - PANCREATIC DISORDER [None]
  - PANCREATIC DUCT STENOSIS [None]
  - PYREXIA [None]
